FAERS Safety Report 4290373-5 (Version None)
Quarter: 2004Q1

REPORT INFORMATION
  Report Type: 
  Country: None (occurrence: None)
  Receive Date: 20040209
  Receipt Date: 20031223
  Transmission Date: 20041129
  Serious: Yes (Death)
  Sender: FDA-Public Use
  Company Number: 7085

PATIENT
  Age: 47 Year
  Sex: Female

DRUGS (3)
  1. LEUCOVORIN CALCIUM [Suspect]
  2. FLUOROURACIL [Suspect]
     Indication: BREAST CANCER
     Dates: start: 20020401, end: 20021101
  3. TRASTUZUMAB [Suspect]
     Indication: BREAST CANCER
     Dates: start: 20020501, end: 20021101

REACTIONS (8)
  - BONE MARROW DEPRESSION [None]
  - CONDITION AGGRAVATED [None]
  - DISSEMINATED INTRAVASCULAR COAGULATION [None]
  - MALIGNANT NEOPLASM PROGRESSION [None]
  - METASTASES TO CENTRAL NERVOUS SYSTEM [None]
  - METASTASES TO LIVER [None]
  - METASTASES TO SKIN [None]
  - THERAPEUTIC RESPONSE DECREASED [None]
